FAERS Safety Report 10023397 (Version 1)
Quarter: 2014Q1

REPORT INFORMATION
  Report Type: Spontaneous
  Country: US (occurrence: US)
  Receive Date: 20140320
  Receipt Date: 20140320
  Transmission Date: 20141002
  Serious: Yes (Death, Other)
  Sender: FDA-Public Use
  Company Number: US-ALEXION PHARMACEUTICALS INC.-A201400764

PATIENT
  Sex: 0

DRUGS (2)
  1. SOLIRIS 300MG [Suspect]
     Indication: HAEMOLYTIC URAEMIC SYNDROME
     Dosage: 900 MG/KG, QW X 4 DOSES
     Route: 042
  2. SOLIRIS 300MG [Suspect]
     Dosage: 1200 MG/KG X 2 DOSES
     Route: 042

REACTIONS (5)
  - Oedema peripheral [Unknown]
  - Dyspnoea [Unknown]
  - Death [Fatal]
  - Blood creatinine increased [Unknown]
  - Off label use [Unknown]
